FAERS Safety Report 15871210 (Version 6)
Quarter: 2019Q3

REPORT INFORMATION
  Report Type: Report from Study
  Country: TW (occurrence: TW)
  Receive Date: 20190126
  Receipt Date: 20190902
  Transmission Date: 20191004
  Serious: Yes (Hospitalization, Other)
  Sender: FDA-Public Use
  Company Number: TW-TAKEDA-2019TUS001264

PATIENT
  Age: 48 Year
  Sex: Female

DRUGS (4)
  1. VEDOLIZUMAB [Suspect]
     Active Substance: VEDOLIZUMAB
     Indication: CROHN^S DISEASE
     Dosage: 300 MILLIGRAM
     Route: 042
     Dates: start: 20181217
  2. ASACOL [Concomitant]
     Active Substance: MESALAMINE
     Dosage: UNK
     Route: 048
  3. PREDNISOLONE. [Concomitant]
     Active Substance: PREDNISOLONE
     Dosage: UNK
     Route: 048
  4. IMURAN [Concomitant]
     Active Substance: AZATHIOPRINE
     Dosage: UNK
     Route: 048

REACTIONS (17)
  - Abdominal pain [Unknown]
  - Anaemia [Unknown]
  - Eosinophilia [Unknown]
  - Dyspnoea [Unknown]
  - Acute kidney injury [Unknown]
  - Hypokalaemia [Unknown]
  - Eosinophilic colitis [Unknown]
  - Vomiting [Unknown]
  - Leukocytosis [Unknown]
  - Crohn^s disease [Recovering/Resolving]
  - Clostridium difficile infection [Unknown]
  - Cold sweat [Unknown]
  - Oedema peripheral [Unknown]
  - Nausea [Unknown]
  - Abdominal tenderness [Unknown]
  - Dizziness [Unknown]
  - Metabolic acidosis [Unknown]

NARRATIVE: CASE EVENT DATE: 20190807
